FAERS Safety Report 4548348-4 (Version None)
Quarter: 2004Q4

REPORT INFORMATION
  Report Type: 
  Country: None (occurrence: None)
  Receive Date: 20041227
  Receipt Date: 20040902
  Transmission Date: 20050328
  Serious: Yes (Hospitalization)
  Sender: FDA-Public Use
  Company Number: 04P-163-0272357-00

PATIENT
  Age: 53 Year
  Sex: Female
  Weight: 90.7194 kg

DRUGS (7)
  1. HUMIRA [Suspect]
     Indication: RHEUMATOID ARTHRITIS
     Dosage: 40 MG, 1 IN 2 WK, SUBCUTANEOUS
     Route: 058
     Dates: start: 20040101, end: 20040821
  2. METHOTREXATE [Concomitant]
  3. CELECOXIB [Concomitant]
  4. PROPACET 100 [Concomitant]
  5. ACETAMINOPHEN W/ CODEINE [Concomitant]
  6. ZOLPIDEM TARTRATE [Concomitant]
  7. VENLAFAXINE HCL [Concomitant]

REACTIONS (1)
  - STAPHYLOCOCCAL INFECTION [None]
